FAERS Safety Report 4663154-8 (Version None)
Quarter: 2005Q2

REPORT INFORMATION
  Report Type: 
  Country: None (occurrence: None)
  Receive Date: 20050513
  Receipt Date: 20050509
  Transmission Date: 20051028
  Serious: Yes (Hospitalization)
  Sender: FDA-Public Use
  Company Number: SUS1-2005-00380

PATIENT
  Age: 71 Year
  Sex: Female
  Weight: 42.2 kg

DRUGS (9)
  1. FOSRENOL [Suspect]
     Indication: HYPERPHOSPHATAEMIA
     Dosage: 1000 MG, 3X/DAY: TID, ORAL
     Route: 048
     Dates: start: 20050201, end: 20050508
  2. CALCINEX [Concomitant]
  3. RENAGEL 9SEVELAMER HYDROCHLORIDE) [Concomitant]
  4. PREDNISONE [Concomitant]
  5. PLAQUENIL [Concomitant]
  6. ENALAPRIL MALEATE [Concomitant]
  7. ALLOPURINOL [Concomitant]
  8. CALCITROL (RETINOL , ERGOCALCIFEROL) [Concomitant]
  9. EPOGEN [Concomitant]

REACTIONS (9)
  - BLOOD PHOSPHORUS INCREASED [None]
  - DIARRHOEA [None]
  - DRUG INEFFECTIVE [None]
  - GASTROINTESTINAL HAEMORRHAGE [None]
  - NAUSEA [None]
  - PEPTIC ULCER [None]
  - STOMATITIS [None]
  - VOMITING [None]
  - WEIGHT DECREASED [None]
